FAERS Safety Report 8047541-6 (Version None)
Quarter: 2012Q1

REPORT INFORMATION
  Report Type: 
  Country: None (occurrence: None)
  Receive Date: 20120116
  Receipt Date: 20120105
  Transmission Date: 20120608
  Serious: Yes (Hospitalization)
  Sender: FDA-Public Use
  Company Number: US-GLAXOSMITHKLINE-A0886378A

PATIENT
  Age: 49 Year
  Sex: Male

DRUGS (6)
  1. CLONIDINE [Concomitant]
  2. GLUCOPHAGE [Concomitant]
  3. VICODIN [Concomitant]
  4. GLUCOTROL [Concomitant]
  5. AVANDIA [Suspect]
     Indication: DIABETES MELLITUS
     Dosage: 4MG TWICE PER DAY
     Route: 048
     Dates: start: 20000101, end: 20100101
  6. AVANDAMET [Suspect]
     Indication: DIABETES MELLITUS
     Route: 048
     Dates: start: 20050101, end: 20070101

REACTIONS (4)
  - CARDIOMYOPATHY [None]
  - VISION BLURRED [None]
  - CARDIAC FAILURE CONGESTIVE [None]
  - RENAL FAILURE [None]
